FAERS Safety Report 7558135-0 (Version None)
Quarter: 2011Q2

REPORT INFORMATION
  Report Type: 
  Country: None (occurrence: None)
  Receive Date: 20110620
  Receipt Date: 20110616
  Transmission Date: 20111010
  Serious: Yes (Hospitalization, Other)
  Sender: FDA-Public Use
  Company Number: US-PFIZER INC-2011133340

PATIENT
  Sex: Male
  Weight: 136 kg

DRUGS (2)
  1. MEDROL [Suspect]
     Dosage: 2 MG, 4X/DAY
     Dates: start: 20101201
  2. MEDROL [Suspect]
     Indication: DYSPNOEA
     Dosage: 4 MG, 4X/DAY
     Route: 048
     Dates: end: 20100101

REACTIONS (3)
  - LABORATORY TEST ABNORMAL [None]
  - INFECTION [None]
  - WITHDRAWAL SYNDROME [None]
